FAERS Safety Report 8224962-X (Version None)
Quarter: 2012Q1

REPORT INFORMATION
  Report Type: 
  Country: None (occurrence: None)
  Receive Date: 20120319
  Receipt Date: 20120307
  Transmission Date: 20120608
  Serious: Yes (Other)
  Sender: FDA-Public Use
  Company Number: 2011SP057757

PATIENT
  Age: 35 Year
  Sex: Female

DRUGS (3)
  1. NASONEX [Suspect]
     Indication: RHINITIS ALLERGIC
     Dosage: 200 MCG;QD;INH
     Route: 055
     Dates: start: 20111208, end: 20111209
  2. NASIVIN [Concomitant]
  3. CETRINE [Concomitant]

REACTIONS (4)
  - ASTHENIA [None]
  - NASAL DISCOMFORT [None]
  - LOSS OF CONSCIOUSNESS [None]
  - TYPE I HYPERSENSITIVITY [None]
